FAERS Safety Report 6177459-5 (Version None)
Quarter: 2009Q2

REPORT INFORMATION
  Report Type: 
  Country: None (occurrence: None)
  Receive Date: 20090501
  Receipt Date: 20090501
  Transmission Date: 20091009
  Serious: Yes (Hospitalization)
  Sender: FDA-Public Use
  Company Number: None

PATIENT
  Age: 44 Year
  Sex: Female

DRUGS (14)
  1. ZOSYN [Suspect]
     Indication: PNEUMONIA
     Dosage: 4.5 GM IV Q 6HRS
     Route: 042
     Dates: start: 20081212, end: 20081219
  2. AMYLASE/LIPASE [Concomitant]
  3. PREDNISONE [Concomitant]
  4. PULMOZYME [Concomitant]
  5. AZITHROMYCIN [Concomitant]
  6. INSULIN [Concomitant]
  7. ZAFIRLUKAST [Concomitant]
  8. LEVOTHYROXINE SODIUM [Concomitant]
  9. ACETYLCYSTEINE [Concomitant]
  10. IPRATROPIUM BROMIDE [Concomitant]
  11. FLUTICASONE [Concomitant]
  12. LEVOFLOX [Concomitant]
  13. ESCITALOPRAM [Concomitant]
  14. OMEPRAZOLE [Concomitant]

REACTIONS (3)
  - ANAPHYLACTIC REACTION [None]
  - BACK PAIN [None]
  - CHILLS [None]
